FAERS Safety Report 7594664-1 (Version None)
Quarter: 2011Q3

REPORT INFORMATION
  Report Type: 
  Country: None (occurrence: None)
  Receive Date: 20110707
  Receipt Date: 20110627
  Transmission Date: 20111222
  Serious: Yes (Hospitalization, Disabling)
  Sender: FDA-Public Use
  Company Number: GB-JNJFOC-20110601958

PATIENT
  Sex: Male

DRUGS (11)
  1. DICLOFENAC SODIUM [Concomitant]
     Indication: PAIN
     Route: 048
  2. PLAVIX [Concomitant]
     Indication: MYOCARDIAL ISCHAEMIA
     Route: 048
     Dates: start: 20100930
  3. HEPARIN [Concomitant]
     Indication: PULMONARY EMBOLISM
     Route: 048
     Dates: start: 20110605
  4. HYDROCORTISONE [Suspect]
     Indication: PROSTATE CANCER METASTATIC
     Route: 048
  5. CANDESARTAN CILEXETIL [Concomitant]
     Indication: HYPERTENSION
     Route: 048
  6. ACETAMINOPHEN [Concomitant]
     Indication: PAIN
     Dosage: 2 TABLETS, RECOMMENDED DAILY INTAKE
     Route: 048
  7. NITROGLYCERIN [Concomitant]
     Indication: MYOCARDIAL ISCHAEMIA
     Route: 062
  8. SINTROM [Concomitant]
     Indication: PULMONARY EMBOLISM
     Route: 065
  9. ABIRATERONE ACETATE [Suspect]
     Indication: PROSTATE CANCER METASTATIC
     Route: 048
     Dates: start: 20071029
  10. FUROSEMIDE [Concomitant]
     Indication: OEDEMA
     Route: 048
  11. ASPIRIN [Concomitant]
     Indication: MYOCARDIAL ISCHAEMIA
     Route: 048

REACTIONS (3)
  - OSTEOPOROTIC FRACTURE [None]
  - CEREBROVASCULAR ACCIDENT [None]
  - PULMONARY EMBOLISM [None]
